FAERS Safety Report 17654449 (Version 2)
Quarter: 2020Q3

REPORT INFORMATION
  Report Type: Spontaneous
  Country: IR (occurrence: IR)
  Receive Date: 20200410
  Receipt Date: 20200818
  Transmission Date: 20201102
  Serious: Yes (Hospitalization, Other)
  Sender: FDA-Public Use
  Company Number: IR-IPCA LABORATORIES LIMITED-IPC-2020-IR-001073

PATIENT

DRUGS (1)
  1. WARFARIN [Suspect]
     Active Substance: WARFARIN
     Indication: PRODUCT USED FOR UNKNOWN INDICATION
     Dosage: UNK
     Route: 065

REACTIONS (6)
  - Penile necrosis [Recovered/Resolved]
  - Haematoma [Recovered/Resolved]
  - Penile haematoma [Recovered/Resolved]
  - Penile haemorrhage [Recovered/Resolved]
  - Skin necrosis [Recovered/Resolved]
  - International normalised ratio increased [Recovered/Resolved]
